FAERS Safety Report 5586886-6 (Version None)
Quarter: 2008Q1

REPORT INFORMATION
  Report Type: 
  Country: None (occurrence: None)
  Receive Date: 20080110
  Receipt Date: 20071231
  Transmission Date: 20080703
  Serious: Yes (Death, Other)
  Sender: FDA-Public Use
  Company Number: US-BRISTOL-MYERS SQUIBB COMPANY-14033906

PATIENT
  Age: 44 Year
  Sex: Male

DRUGS (5)
  1. PRINIVIL [Suspect]
     Route: 048
  2. NORTRIPTYLINE HCL [Suspect]
     Route: 048
  3. METFORMIN HCL [Suspect]
     Route: 048
  4. GLIPIZIDE [Suspect]
     Route: 048
  5. DULOXETINE HCL [Suspect]
     Route: 048

REACTIONS (2)
  - COMPLETED SUICIDE [None]
  - OVERDOSE [None]
